FAERS Safety Report 4835789-0 (Version None)
Quarter: 2005Q4

REPORT INFORMATION
  Report Type: 
  Country: None (occurrence: None)
  Receive Date: 20051123
  Receipt Date: 20051107
  Transmission Date: 20060501
  Serious: Yes (Other)
  Sender: FDA-Public Use
  Company Number: DE-GLAXOSMITHKLINE-D0047904A

PATIENT
  Sex: Male

DRUGS (3)
  1. SEROXAT [Suspect]
     Indication: PANIC DISORDER
     Dosage: 20MG PER DAY
     Route: 048
     Dates: start: 20050606
  2. BEER [Suspect]
     Dosage: 1.4ML SINGLE DOSE
     Route: 048
  3. SPIRITS [Suspect]
     Route: 048

REACTIONS (4)
  - ALCOHOL INTERACTION [None]
  - AMNESIA [None]
  - DELIRIUM [None]
  - EXCITABILITY [None]
